FAERS Safety Report 16643221 (Version 1)
Quarter: 2019Q3

REPORT INFORMATION
  Report Type: Spontaneous
  Country: FR (occurrence: FR)
  Receive Date: 20190729
  Receipt Date: 20190729
  Transmission Date: 20191004
  Serious: Yes (Death, Hospitalization)
  Sender: FDA-Public Use
  Company Number: FR-OTSUKA-2019_027576

PATIENT
  Age: 50 Year
  Sex: Male

DRUGS (1)
  1. ABILIFY MAINTENA [Suspect]
     Active Substance: ARIPIPRAZOLE
     Indication: SCHIZOPHRENIA
     Dosage: UNK
     Route: 030
     Dates: end: 201905

REACTIONS (3)
  - Schizophrenia [Unknown]
  - Completed suicide [Fatal]
  - Therapy cessation [Unknown]

NARRATIVE: CASE EVENT DATE: 20190722
